FAERS Safety Report 20968260 (Version 1)
Quarter: 2022Q2

REPORT INFORMATION
  Report Type: Spontaneous
  Country: CN (occurrence: CN)
  Receive Date: 20220616
  Receipt Date: 20220616
  Transmission Date: 20220721
  Serious: Yes (Death)
  Sender: FDA-Public Use
  Company Number: CN-ZAILAB-ZAI202200600

PATIENT
  Age: 38 Year
  Sex: Female
  Weight: 55 kg

DRUGS (3)
  1. QINLOCK [Suspect]
     Active Substance: RIPRETINIB
     Indication: Gastrointestinal stromal tumour
     Dosage: 150 MG, DAILY
     Route: 048
     Dates: start: 20211231
  2. QINLOCK [Suspect]
     Active Substance: RIPRETINIB
     Dosage: 100 MG, DAILY
     Route: 048
     Dates: end: 20220219
  3. QINLOCK [Suspect]
     Active Substance: RIPRETINIB
     Dosage: 150 MG, DAILY
     Route: 048
     Dates: start: 20220220, end: 20220407

REACTIONS (2)
  - Neoplasm progression [Fatal]
  - Drug intolerance [Unknown]

NARRATIVE: CASE EVENT DATE: 20211231
